FAERS Safety Report 4630994-0 (Version None)
Quarter: 2005Q2

REPORT INFORMATION
  Report Type: 
  Country: None (occurrence: None)
  Receive Date: 20050406
  Receipt Date: 20050406
  Transmission Date: 20051028
  Serious: Yes (Life-Threatening, Hospitalization)
  Sender: FDA-Public Use
  Company Number: None

PATIENT
  Age: 74 Year
  Sex: Male
  Weight: 92.7 kg

DRUGS (9)
  1. DOCETAXEL [Suspect]
     Indication: NON-SMALL CELL LUNG CANCER
     Dosage: 75MG/M2    Q21 DAYS    INTRAVENOU
     Route: 042
     Dates: start: 20050309, end: 20050330
  2. IRESSA [Suspect]
     Dosage: 250 MG QD  ORAL
     Route: 048
     Dates: start: 20050309, end: 20050330
  3. DEXAMETHASONE [Concomitant]
  4. LIPITOR [Concomitant]
  5. MULTI-VITAMINS [Concomitant]
  6. MAXZIDE [Concomitant]
  7. FLOMAX [Concomitant]
  8. RITALIN [Concomitant]
  9. ASPIRIN [Concomitant]

REACTIONS (4)
  - HALLUCINATION, TACTILE [None]
  - HALLUCINATION, VISUAL [None]
  - NERVOUS SYSTEM DISORDER [None]
  - NUCLEAR MAGNETIC RESONANCE IMAGING BRAIN ABNORMAL [None]
